FAERS Safety Report 5847350-X (Version None)
Quarter: 2008Q3

REPORT INFORMATION
  Report Type: 
  Country: None (occurrence: None)
  Receive Date: 20080815
  Receipt Date: 20080813
  Transmission Date: 20090109
  Serious: Yes (Death)
  Sender: FDA-Public Use
  Company Number: IN-GENENTECH-266315

PATIENT
  Sex: Female

DRUGS (1)
  1. METALYSE [Suspect]
     Indication: ACUTE MYOCARDIAL INFARCTION
     Dosage: 40 MG, UNK
     Route: 042
     Dates: start: 20080810, end: 20080810

REACTIONS (1)
  - DEATH [None]
